FAERS Safety Report 4296887-6 (Version None)
Quarter: 2004Q1

REPORT INFORMATION
  Report Type: 
  Country: None (occurrence: None)
  Receive Date: 20040126
  Receipt Date: 20031014
  Transmission Date: 20041129
  Serious: No
  Sender: FDA-Public Use
  Company Number: USA030946581

PATIENT
  Age: 11 Year
  Sex: Female
  Weight: 36 kg

DRUGS (2)
  1. STRATTERA [Suspect]
     Indication: ATTENTION DEFICIT/HYPERACTIVITY DISORDER
     Dosage: 25 MG/DAY
     Dates: start: 20030823
  2. DEXTRO AMPHETAMINE SULFATE TAB [Concomitant]

REACTIONS (3)
  - FATIGUE [None]
  - IMPULSE-CONTROL DISORDER [None]
  - SOMNOLENCE [None]
